FAERS Safety Report 21713302 (Version 1)
Quarter: 2022Q4

REPORT INFORMATION
  Report Type: Spontaneous
  Country: US (occurrence: None)
  Receive Date: 20221208
  Receipt Date: 20221208
  Transmission Date: 20230113
  Serious: Yes (Hospitalization)
  Sender: FDA-Public Use
  Company Number: None

PATIENT
  Age: 80 Year
  Sex: Male
  Weight: 72 kg

DRUGS (1)
  1. APIXABAN [Suspect]
     Active Substance: APIXABAN
     Indication: Atrial fibrillation
     Dosage: FREQUENCY : DAILY;?
     Route: 048
     Dates: start: 20170706

REACTIONS (6)
  - Pain in extremity [None]
  - Anaemia [None]
  - Blood creatinine increased [None]
  - Cough [None]
  - Respiratory tract congestion [None]
  - Haematochezia [None]

NARRATIVE: CASE EVENT DATE: 20220902
